FAERS Safety Report 24557329 (Version 1)
Quarter: 2024Q4

REPORT INFORMATION
  Report Type: Spontaneous
  Country: IT (occurrence: IT)
  Receive Date: 20241028
  Receipt Date: 20241028
  Transmission Date: 20250115
  Serious: Yes (Hospitalization, Other)
  Sender: PFIZER
  Company Number: IT-VELOXIS PHARMACEUTICALS, INC.-2024-VEL-00564

PATIENT
  Age: 72 Year
  Sex: Female

DRUGS (2)
  1. METHYLPREDNISOLONE [Suspect]
     Active Substance: METHYLPREDNISOLONE
     Indication: Immunosuppressant drug therapy
     Dosage: UNK
     Route: 065
     Dates: start: 202302
  2. TACROLIMUS [Suspect]
     Active Substance: TACROLIMUS
     Indication: Immunosuppressant drug therapy
     Dosage: UNK
     Route: 065
     Dates: start: 202302

REACTIONS (11)
  - Chronic kidney disease [Unknown]
  - Escherichia urinary tract infection [Unknown]
  - Escherichia urinary tract infection [Unknown]
  - Escherichia urinary tract infection [Unknown]
  - Klebsiella urinary tract infection [Unknown]
  - Klebsiella urinary tract infection [Unknown]
  - Klebsiella urinary tract infection [Unknown]
  - Urosepsis [Unknown]
  - Urosepsis [Unknown]
  - Urosepsis [Unknown]
  - Pneumonia adenoviral [Unknown]

NARRATIVE: CASE EVENT DATE: 20230401
